FAERS Safety Report 8568835 (Version 3)
Quarter: 2013Q1

REPORT INFORMATION
  Report Type: Spontaneous
  Country: US (occurrence: US)
  Receive Date: 20120518
  Receipt Date: 20130325
  Transmission Date: 20140127
  Serious: No
  Sender: FDA-Public Use
  Company Number: US-ELI_LILLY_AND_COMPANY-US201205005297

PATIENT
  Sex: 0
  Weight: 94.79 kg

DRUGS (11)
  1. CIALIS [Suspect]
     Indication: ERECTILE DYSFUNCTION
     Dosage: 10 MG, UNK
     Dates: start: 201204
  2. CIALIS [Suspect]
     Dosage: 5 MG, UNK
     Dates: end: 20120514
  3. CIALIS [Suspect]
     Dosage: 2.5 MG, QD
     Dates: end: 20120514
  4. CIALIS [Suspect]
     Dosage: 20 MG, UNKNOWN
  5. COZAAR [Concomitant]
  6. ALBUTEROL [Concomitant]
  7. INSULIN [Concomitant]
  8. KETOCONAZOLE [Concomitant]
  9. LORATADINE [Concomitant]
  10. METFORMIN [Concomitant]
  11. RESTORIL [Concomitant]

REACTIONS (4)
  - Visual impairment [Recovered/Resolved]
  - Nausea [Unknown]
  - Muscle spasms [Unknown]
  - Pruritus [Unknown]
